FAERS Safety Report 14579111 (Version 1)
Quarter: 2018Q1

REPORT INFORMATION
  Report Type: Spontaneous
  Country: US (occurrence: US)
  Receive Date: 20180227
  Receipt Date: 20180227
  Transmission Date: 20180509
  Serious: No
  Sender: FDA-Public Use
  Company Number: US-INCYTE CORPORATION-2018IN001756

PATIENT

DRUGS (1)
  1. JAKAFI [Suspect]
     Active Substance: RUXOLITINIB
     Indication: MYELOFIBROSIS
     Dosage: 5 MG, BID
     Route: 048

REACTIONS (6)
  - Contusion [Unknown]
  - Nausea [Unknown]
  - Epistaxis [Unknown]
  - Platelet count decreased [Unknown]
  - Alopecia [Unknown]
  - Fatigue [Unknown]
